FAERS Safety Report 24019468 (Version 2)
Quarter: 2025Q1

REPORT INFORMATION
  Report Type: Spontaneous
  Country: US (occurrence: US)
  Receive Date: 20240627
  Receipt Date: 20250312
  Transmission Date: 20250408
  Serious: No
  Sender: MYLAN
  Company Number: US-MYLANLABS-2024M1054290

PATIENT
  Age: 96 Year
  Sex: Female

DRUGS (2)
  1. FENTANYL TRANSDERMAL SYSTEM [Suspect]
     Active Substance: FENTANYL
     Indication: Back disorder
     Dosage: 12 MICROGRAM, QH (APPLIED ONE PATCH EVERY 72 HOURS)
  2. FENTANYL TRANSDERMAL SYSTEM [Suspect]
     Active Substance: FENTANYL
     Indication: Back disorder
     Dosage: 25 MICROGRAM, QH (PER HOUR)
     Dates: start: 20250223

REACTIONS (6)
  - Pain [Unknown]
  - Illness [Unknown]
  - Heart rate increased [Unknown]
  - Off label use [Unknown]
  - Drug ineffective [Unknown]
  - Product adhesion issue [Unknown]

NARRATIVE: CASE EVENT DATE: 20250223
